FAERS Safety Report 8830342 (Version 1)
Quarter: 2012Q4

REPORT INFORMATION
  Report Type: Spontaneous
  Country: US (occurrence: None)
  Receive Date: 20121005
  Receipt Date: 20121005
  Transmission Date: 20130627
  Serious: Yes (Other)
  Sender: FDA-Public Use
  Company Number: None

PATIENT
  Sex: Male
  Weight: 85.73 kg

DRUGS (1)
  1. DONEPEZIL [Suspect]
     Route: 048
     Dates: start: 201110

REACTIONS (3)
  - Headache [None]
  - Condition aggravated [None]
  - Product substitution issue [None]
